FAERS Safety Report 10074503 (Version 1)
Quarter: 2014Q2

REPORT INFORMATION
  Report Type: Spontaneous
  Country: US (occurrence: US)
  Receive Date: 20140411
  Receipt Date: 20140411
  Transmission Date: 20141212
  Serious: No
  Sender: FDA-Public Use
  Company Number: US-SA-2013SA110961

PATIENT
  Age: 67 Year
  Sex: Female
  Weight: 51 kg

DRUGS (1)
  1. ALLEGRA D [Suspect]
     Indication: SEASONAL ALLERGY
     Route: 048
     Dates: end: 20131028

REACTIONS (2)
  - Insomnia [Recovered/Resolved]
  - Drug intolerance [Unknown]
